FAERS Safety Report 10264248 (Version 2)
Quarter: 2014Q3

REPORT INFORMATION
  Report Type: Spontaneous
  Country: IT (occurrence: None)
  Receive Date: 20140624
  Receipt Date: 20140714
  Transmission Date: 20150326
  Serious: Yes (Hospitalization)
  Sender: FDA-Public Use
  Company Number: 2014AP003406

PATIENT
  Age: 62 Year
  Sex: Male

DRUGS (8)
  1. ZEFFIX [Suspect]
     Active Substance: LAMIVUDINE
     Indication: INTENTIONAL SELF-INJURY
     Dosage: SINGLE
     Route: 048
     Dates: start: 20140423, end: 20140423
  2. CITALOPRAM [Suspect]
     Active Substance: CITALOPRAM HYDROBROMIDE
     Indication: INTENTIONAL SELF-INJURY
     Dosage: SINGLE
     Route: 048
     Dates: start: 20140423, end: 20140423
  3. METFORMIN [Suspect]
     Active Substance: METFORMIN HYDROCHLORIDE
     Indication: INTENTIONAL SELF-INJURY
     Dosage: SINGLE
     Route: 048
     Dates: start: 20140423, end: 20140423
  4. SIMVASTATIN. [Suspect]
     Active Substance: SIMVASTATIN
     Indication: INTENTIONAL SELF-INJURY
     Dosage: SINGLE
     Route: 048
     Dates: start: 20140423, end: 20140423
  5. LANSOPRAZOLE. [Suspect]
     Active Substance: LANSOPRAZOLE
     Indication: INTENTIONAL SELF-INJURY
     Dosage: SINGLE
     Route: 048
     Dates: start: 20140423, end: 20140423
  6. VASORETIC [Suspect]
     Active Substance: ENALAPRIL MALEATE\HYDROCHLOROTHIAZIDE
     Indication: INTENTIONAL SELF-INJURY
     Dosage: SINGLE
     Route: 048
     Dates: start: 20140423, end: 20140423
  7. DENIBAN [Suspect]
     Active Substance: AMISULPRIDE
     Indication: INTENTIONAL SELF-INJURY
     Dosage: SINGLE
     Route: 048
     Dates: start: 20140423, end: 20140423
  8. ZOLPIDEM [Suspect]
     Active Substance: ZOLPIDEM\ZOLPIDEM TARTRATE
     Indication: INTENTIONAL SELF-INJURY
     Route: 048
     Dates: start: 20140423, end: 20140423

REACTIONS (8)
  - Drug abuse [None]
  - Conduction disorder [None]
  - Sopor [None]
  - Depressed level of consciousness [None]
  - Hypotension [None]
  - Intentional self-injury [None]
  - Metabolic acidosis [None]
  - Self injurious behaviour [None]

NARRATIVE: CASE EVENT DATE: 20140423
